FAERS Safety Report 6102934-9 (Version None)
Quarter: 2009Q1

REPORT INFORMATION
  Report Type: 
  Country: None (occurrence: None)
  Receive Date: 20090303
  Receipt Date: 20090303
  Transmission Date: 20090719
  Serious: Yes (Hospitalization)
  Sender: FDA-Public Use
  Company Number: None

PATIENT
  Age: 76 Year
  Sex: Male
  Weight: 82.2 kg

DRUGS (6)
  1. WARFARIN SODIUM [Suspect]
     Indication: ATRIAL FIBRILLATION
     Dosage: 2MG-2MG-1MG-2MG-2MG-1MG DAILY PO CHRONIC
     Route: 048
  2. TOPROL-XL [Concomitant]
  3. TRICOR [Concomitant]
  4. VYTORIN [Concomitant]
  5. DIOVAN HCT [Concomitant]
  6. FLEMAX -CHRONIC- [Concomitant]

REACTIONS (1)
  - PULMONARY HAEMORRHAGE [None]
